FAERS Safety Report 9286473 (Version 1)
Quarter: 2013Q2

REPORT INFORMATION
  Report Type: Spontaneous
  Country: US (occurrence: None)
  Receive Date: 20130503
  Receipt Date: 20130503
  Transmission Date: 20140414
  Serious: Yes (Other)
  Sender: FDA-Public Use
  Company Number: B0888949A

PATIENT
  Sex: 0

DRUGS (2)
  1. TOPOTECAN [Suspect]
     Indication: RETINOBLASTOMA
  2. CYCLOPHOSPHAMIDE [Suspect]
     Indication: RETINOBLASTOMA

REACTIONS (1)
  - Deafness neurosensory [None]
